FAERS Safety Report 11807418 (Version 1)
Quarter: 2015Q4

REPORT INFORMATION
  Report Type: Spontaneous
  Country: US (occurrence: US)
  Receive Date: 20151207
  Receipt Date: 20151207
  Transmission Date: 20160305
  Serious: Yes (Other)
  Sender: FDA-Public Use
  Company Number: US-PFIZER INC-2015425022

PATIENT
  Age: 49 Year
  Sex: Female
  Weight: 84.81 kg

DRUGS (4)
  1. CHANTIX [Suspect]
     Active Substance: VARENICLINE TARTRATE
     Indication: SMOKING CESSATION THERAPY
     Dosage: 0.5 MG, UNK (11-1MG 42 TABLETS IN DOSE PACK AS DIRECTED)
  2. ASPIRIN 81 [Concomitant]
     Dosage: 81 MG, DAILY
     Route: 048
  3. ENALAPRIL MALEATE. [Concomitant]
     Active Substance: ENALAPRIL MALEATE
     Dosage: 2.5 MG, 2X/DAY
     Route: 048
  4. WELLBUTRIN [Concomitant]
     Active Substance: BUPROPION HYDROCHLORIDE
     Dosage: 75 MG, 2X/DAY
     Route: 048

REACTIONS (2)
  - Benign uterine neoplasm [Unknown]
  - Essential hypertension [Unknown]
